FAERS Safety Report 8605241-5 (Version None)
Quarter: 2012Q3

REPORT INFORMATION
  Report Type: 
  Country: None (occurrence: None)
  Receive Date: 20120820
  Receipt Date: 20080312
  Transmission Date: 20120928
  Serious: Yes (Death)
  Sender: FDA-Public Use
  Company Number: FR-CELGENEUS-056-C5013-12080386

PATIENT
  Age: 64 Year
  Sex: Male

DRUGS (8)
  1. CLONAZEPAM [Concomitant]
     Route: 065
     Dates: start: 20010101
  2. DEFEROXAMINE MESYLATE [Concomitant]
     Indication: IRON OVERLOAD
     Route: 065
     Dates: start: 20010101
  3. SPIRONOLACTONE [Concomitant]
     Route: 065
     Dates: start: 20051208
  4. LENALIDOMIDE [Suspect]
     Dosage: 5 MILLIGRAM
     Route: 048
     Dates: start: 20050713, end: 20051107
  5. INSULIN [Concomitant]
     Route: 065
  6. LENOGRASTIM [Concomitant]
     Indication: NEUTROPENIA
     Route: 065
     Dates: start: 20050816
  7. PARAFFIN LIQUID [Concomitant]
     Indication: CONSTIPATION
     Route: 065
     Dates: start: 20050912
  8. LISINOPRIL [Concomitant]
     Indication: HYPERTENSION

REACTIONS (1)
  - HEPATIC NEOPLASM MALIGNANT [None]
